FAERS Safety Report 6080771-1 (Version None)
Quarter: 2009Q1

REPORT INFORMATION
  Report Type: 
  Country: None (occurrence: None)
  Receive Date: 20090217
  Receipt Date: 20090210
  Transmission Date: 20090719
  Serious: Yes (Other)
  Sender: FDA-Public Use
  Company Number: PHHY2009FR05214

PATIENT
  Sex: Male

DRUGS (8)
  1. STALEVO 100 [Suspect]
     Indication: PARKINSON'S DISEASE
     Dosage: 200/50/12.5 MG, TID
     Route: 048
  2. SIFROL [Suspect]
     Indication: PARKINSON'S DISEASE
     Dosage: 0.7 MG, TID
     Route: 048
     Dates: end: 20090105
  3. SIFROL [Suspect]
     Dosage: 1.05MG/D
     Dates: start: 20090106
  4. APOKINON [Suspect]
     Indication: PARKINSON'S DISEASE
     Dosage: 50 MG, BID
     Route: 048
     Dates: start: 20080801, end: 20090104
  5. APOKINON [Suspect]
     Dosage: 50 MG/D
     Dates: start: 20090105
  6. EQUANIL [Concomitant]
     Dosage: 250 MG, TID
  7. ATARAX [Concomitant]
     Dosage: 25 MG, TID
  8. DOMPERIDONE [Concomitant]
     Dosage: 6 DF/DAY

REACTIONS (4)
  - COMPULSIVE SEXUAL BEHAVIOUR [None]
  - COMPULSIVE SHOPPING [None]
  - HYPERSEXUALITY [None]
  - LIBIDO INCREASED [None]
